FAERS Safety Report 21364863 (Version 6)
Quarter: 2023Q2

REPORT INFORMATION
  Report Type: Report from Study
  Country: US (occurrence: US)
  Receive Date: 20220922
  Receipt Date: 20230506
  Transmission Date: 20230722
  Serious: Yes (Other)
  Sender: FDA-Public Use
  Company Number: US-ABBVIE-22K-163-4295656-00

PATIENT
  Age: 72 Year
  Sex: Male

DRUGS (6)
  1. HUMIRA [Suspect]
     Active Substance: ADALIMUMAB
     Indication: Rheumatoid arthritis
     Dosage: CITRATE FREE
     Route: 058
  2. HUMIRA [Suspect]
     Active Substance: ADALIMUMAB
     Indication: Psoriatic arthropathy
     Dosage: CITRATE FREE, STRENGTH 40 MG
     Route: 058
  3. HUMIRA [Suspect]
     Active Substance: ADALIMUMAB
     Dosage: CITRATE FREE, STRENGTH 40 MG
     Route: 058
  4. HUMIRA [Suspect]
     Active Substance: ADALIMUMAB
     Dosage: CITRATE FREE
     Route: 058
  5. MODERNA COVID-19 VACCINE [Concomitant]
     Active Substance: ELASOMERAN
     Indication: COVID-19 immunisation
     Dosage: ONE IN ONCE
     Route: 030
  6. MODERNA COVID-19 VACCINE [Concomitant]
     Active Substance: ELASOMERAN
     Indication: COVID-19 immunisation
     Dosage: BOOSTER DOSE?ONE IN ONCE
     Route: 030

REACTIONS (13)
  - Myocardial infarction [Recovered/Resolved]
  - Monoparesis [Recovering/Resolving]
  - Joint range of motion decreased [Recovering/Resolving]
  - Asthenia [Unknown]
  - Myocardial infarction [Recovering/Resolving]
  - Rheumatoid arthritis [Unknown]
  - Hypoaesthesia [Recovering/Resolving]
  - Musculoskeletal disorder [Unknown]
  - Chest discomfort [Recovering/Resolving]
  - Weight decreased [Unknown]
  - Depression [Unknown]
  - Arthralgia [Unknown]
  - Cardiac rehabilitation therapy [Unknown]

NARRATIVE: CASE EVENT DATE: 20220325
